FAERS Safety Report 22146606 (Version 1)
Quarter: 2023Q1

REPORT INFORMATION
  Report Type: Spontaneous
  Country: CN (occurrence: CN)
  Receive Date: 20230328
  Receipt Date: 20230328
  Transmission Date: 20230417
  Serious: Yes (Other)
  Sender: FDA-Public Use
  Company Number: CN-PFIZER INC-PV202300055466

PATIENT
  Age: 56 Year
  Sex: Female

DRUGS (3)
  1. PACLITAXEL [Suspect]
     Active Substance: PACLITAXEL
     Indication: Ovarian cancer
     Dosage: 30 MG, 1X/DAY
     Route: 041
     Dates: start: 20230209, end: 20230209
  2. PACLITAXEL [Suspect]
     Active Substance: PACLITAXEL
     Dosage: 210 MG, 1X/DAY
     Route: 041
     Dates: start: 20230209, end: 20230209
  3. CARBOPLATIN [Suspect]
     Active Substance: CARBOPLATIN
     Indication: Ovarian cancer
     Dosage: 550 MG, 1X/DAY
     Route: 041
     Dates: start: 20230209, end: 20230209

REACTIONS (3)
  - Drug-induced liver injury [Recovering/Resolving]
  - Anaemia [Recovering/Resolving]
  - Platelet count decreased [Recovered/Resolved]

NARRATIVE: CASE EVENT DATE: 20230210
